FAERS Safety Report 14268256 (Version 2)
Quarter: 2018Q1

REPORT INFORMATION
  Report Type: Spontaneous
  Country: US (occurrence: US)
  Receive Date: 20171211
  Receipt Date: 20180105
  Transmission Date: 20180508
  Serious: No
  Sender: FDA-Public Use
  Company Number: US-BRISTOL-MYERS SQUIBB COMPANY-BMS-2017-111889

PATIENT
  Age: 67 Year
  Sex: Male

DRUGS (18)
  1. RANOLAZINE. [Suspect]
     Active Substance: RANOLAZINE
     Indication: CORONARY BYPASS STENOSIS
     Route: 065
  2. APIXABAN [Suspect]
     Active Substance: APIXABAN
     Indication: CORONARY BYPASS STENOSIS
     Route: 065
  3. NEBIVOLOL. [Suspect]
     Active Substance: NEBIVOLOL
     Indication: ANGINA UNSTABLE
     Dosage: 10 MG, QD
     Route: 048
  4. AMIODARONE [Suspect]
     Active Substance: AMIODARONE
     Indication: ANGINA UNSTABLE
     Route: 065
  5. L-ARGININE                         /00126101/ [Suspect]
     Active Substance: ARGININE
     Indication: CORONARY BYPASS STENOSIS
     Route: 065
  6. NEBIVOLOL. [Suspect]
     Active Substance: NEBIVOLOL
     Indication: CORONARY BYPASS STENOSIS
     Route: 065
  7. ASPIRIN. [Suspect]
     Active Substance: ASPIRIN
     Indication: ANGINA UNSTABLE
     Dosage: 325 MG, QD
     Route: 048
  8. ISOSORBIDE MONONITRATE. [Suspect]
     Active Substance: ISOSORBIDE MONONITRATE
     Indication: ANGINA UNSTABLE
     Dosage: 120 MG, QD
     Route: 048
  9. L-ARGININE                         /00126101/ [Suspect]
     Active Substance: ARGININE
     Indication: ANGINA UNSTABLE
     Dosage: 1 G, BID
     Route: 048
  10. AMIODARONE [Suspect]
     Active Substance: AMIODARONE
     Indication: CORONARY BYPASS STENOSIS
     Route: 065
  11. PRASUGREL. [Suspect]
     Active Substance: PRASUGREL
     Indication: ANGINA UNSTABLE
     Dosage: 10 MG, QD
     Route: 048
  12. ISOSORBIDE MONONITRATE. [Suspect]
     Active Substance: ISOSORBIDE MONONITRATE
     Indication: CORONARY BYPASS STENOSIS
     Route: 065
  13. AMLODIPIN                          /00972401/ [Suspect]
     Active Substance: AMLODIPINE BESYLATE
     Indication: ANGINA UNSTABLE
     Dosage: 10 MG, BID
     Route: 048
  14. AMLODIPIN                          /00972401/ [Suspect]
     Active Substance: AMLODIPINE BESYLATE
     Indication: CORONARY BYPASS STENOSIS
     Route: 065
  15. RANOLAZINE. [Suspect]
     Active Substance: RANOLAZINE
     Indication: ANGINA UNSTABLE
     Dosage: 1 G, BID
     Route: 048
  16. ASPIRIN. [Suspect]
     Active Substance: ASPIRIN
     Indication: CORONARY BYPASS STENOSIS
     Route: 065
  17. APIXABAN [Suspect]
     Active Substance: APIXABAN
     Indication: ANGINA UNSTABLE
     Route: 065
  18. PRASUGREL. [Suspect]
     Active Substance: PRASUGREL
     Indication: CORONARY BYPASS STENOSIS
     Route: 065

REACTIONS (3)
  - Nausea [Unknown]
  - Hypotension [Unknown]
  - Product use in unapproved indication [Unknown]
